FAERS Safety Report 16398261 (Version 1)
Quarter: 2019Q2

REPORT INFORMATION
  Report Type: Spontaneous
  Country: US (occurrence: US)
  Receive Date: 20190430
  Receipt Date: 20190430
  Transmission Date: 20190711
  Serious: Yes (Hospitalization)
  Sender: FDA-Public Use
  Company Number: None

PATIENT
  Age: 69 Year
  Sex: Female
  Weight: 59.03 kg

DRUGS (3)
  1. ALOXI [Suspect]
     Active Substance: PALONOSETRON HYDROCHLORIDE
     Dates: end: 20190327
  2. DEXAMETHASONE. [Suspect]
     Active Substance: DEXAMETHASONE
     Dates: end: 20190330
  3. OLANZAPINE. [Suspect]
     Active Substance: OLANZAPINE
     Dates: end: 20190330

REACTIONS (7)
  - Protein urine [None]
  - Lung infiltration [None]
  - Respiratory distress [None]
  - Haematuria [None]
  - Pneumonia [None]
  - Nitrite urine present [None]
  - Neutropenia [None]

NARRATIVE: CASE EVENT DATE: 20190429
